FAERS Safety Report 10426773 (Version 6)
Quarter: 2014Q4

REPORT INFORMATION
  Report Type: Spontaneous
  Country: US (occurrence: US)
  Receive Date: 20140903
  Receipt Date: 20141219
  Transmission Date: 20150528
  Serious: Yes (Other)
  Sender: FDA-Public Use
  Company Number: US-JNJFOC-20140900524

PATIENT
  Age: 80 Year
  Sex: Female
  Weight: 48.99 kg

DRUGS (8)
  1. METHOTREXATE [Concomitant]
     Active Substance: METHOTREXATE
     Indication: RHEUMATOID ARTHRITIS
     Route: 058
     Dates: start: 201403
  2. PREDNISONE. [Concomitant]
     Active Substance: PREDNISONE
     Indication: RHEUMATOID ARTHRITIS
     Route: 065
     Dates: start: 201403
  3. SILVADENE [Concomitant]
     Active Substance: SILVER SULFADIAZINE
     Indication: SKIN REACTION
     Route: 061
     Dates: start: 20140609, end: 201408
  4. LIDOCAINE. [Concomitant]
     Active Substance: LIDOCAINE
     Indication: SKIN REACTION
     Route: 061
     Dates: start: 20140609, end: 201408
  5. FOLIC ACID. [Concomitant]
     Active Substance: FOLIC ACID
     Route: 065
  6. WATER PILL NOS [Concomitant]
     Active Substance: UNSPECIFIED INGREDIENT
     Route: 065
  7. REMICADE [Suspect]
     Active Substance: INFLIXIMAB
     Indication: ARTHRITIS
     Route: 042
  8. LISINOPRIL. [Concomitant]
     Active Substance: LISINOPRIL
     Indication: BLOOD PRESSURE
     Route: 065

REACTIONS (6)
  - Diverticulum intestinal [Unknown]
  - Neuroendocrine carcinoma of the skin [Recovering/Resolving]
  - Spinal osteoarthritis [Unknown]
  - Dyspnoea [Unknown]
  - Hiatus hernia [Unknown]
  - Renal cyst [Unknown]

NARRATIVE: CASE EVENT DATE: 2013
